FAERS Safety Report 18634185 (Version 3)
Quarter: 2021Q1

REPORT INFORMATION
  Report Type: Spontaneous
  Country: US (occurrence: US)
  Receive Date: 20201218
  Receipt Date: 20210220
  Transmission Date: 20210419
  Serious: No
  Sender: FDA-Public Use
  Company Number: US-ASTRAZENECA-2020SF57270

PATIENT
  Age: 17825 Day
  Sex: Female
  Weight: 99.8 kg

DRUGS (11)
  1. BYDUREON BCISE [Suspect]
     Active Substance: EXENATIDE
     Indication: TYPE 2 DIABETES MELLITUS
     Route: 058
  2. OMEGA 3 [Concomitant]
     Active Substance: OMEGA-3 FATTY ACIDS
     Indication: BLOOD CHOLESTEROL
  3. ROSUVASTATIN CALCIUM. [Concomitant]
     Active Substance: ROSUVASTATIN CALCIUM
     Indication: BLOOD CHOLESTEROL ABNORMAL
  4. LOSARTAN. [Concomitant]
     Active Substance: LOSARTAN
     Dosage: 100?25 DAILY STARTED YEARS AGO
     Dates: start: 2019
  5. BYDUREON BCISE [Suspect]
     Active Substance: EXENATIDE
     Indication: BLOOD GLUCOSE ABNORMAL
     Route: 058
  6. INSULIN [Concomitant]
     Active Substance: INSULIN NOS
     Dosage: 4 TIMES PER DAY
  7. METFORMIN [Concomitant]
     Active Substance: METFORMIN HYDROCHLORIDE
     Dosage: METFORMIN FOR A YEAR
  8. GABAPENTIN. [Concomitant]
     Active Substance: GABAPENTIN
  9. DULOXETINE. [Concomitant]
     Active Substance: DULOXETINE
     Dosage: 50 OR 60MG DAILY
     Dates: start: 2016
  10. FARXIGA [Concomitant]
     Active Substance: DAPAGLIFLOZIN PROPANEDIOL
     Dates: start: 2019
  11. JANUMET XR [Concomitant]
     Active Substance: METFORMIN HYDROCHLORIDE\SITAGLIPTIN PHOSPHATE
     Dosage: 50?1000MG
     Dates: start: 2019

REACTIONS (6)
  - Injection site pain [Recovered/Resolved]
  - Intentional device misuse [Unknown]
  - Device malfunction [Recovered/Resolved]
  - Wrong technique in device usage process [Unknown]
  - Contusion [Unknown]
  - Injection site haemorrhage [Unknown]

NARRATIVE: CASE EVENT DATE: 20201120
